FAERS Safety Report 7243508-6 (Version None)
Quarter: 2011Q1

REPORT INFORMATION
  Report Type: 
  Country: None (occurrence: None)
  Receive Date: 20110125
  Receipt Date: 20110117
  Transmission Date: 20110831
  Serious: Yes (Other)
  Sender: FDA-Public Use
  Company Number: US-JNJFOC-20110104467

PATIENT
  Sex: Male
  Weight: 86.18 kg

DRUGS (16)
  1. TYLENOL NUMBER 3 [Concomitant]
     Indication: PAIN
     Route: 048
  2. TRAMADOL [Concomitant]
     Indication: PAIN
     Route: 048
  3. LISINOPRIL [Concomitant]
     Indication: HYPERTENSION
     Route: 048
  4. REMICADE [Suspect]
     Route: 042
  5. CELEBREX [Concomitant]
     Route: 048
  6. CELEBREX [Concomitant]
     Indication: PAIN
     Route: 048
  7. PREDNISONE [Concomitant]
     Indication: RHEUMATOID ARTHRITIS
     Route: 048
  8. CELEBREX [Concomitant]
     Indication: INFLAMMATION
     Route: 048
  9. FOLIC ACID [Concomitant]
     Indication: NUTRITIONAL SUPPORT
     Route: 048
  10. PROSCAR [Concomitant]
     Indication: ALOPECIA
     Route: 048
  11. QUININE [Concomitant]
     Indication: MUSCLE SPASMS
     Route: 048
  12. METHOTREXATE [Concomitant]
     Indication: RHEUMATOID ARTHRITIS
     Dosage: 6 TABLETS ONCE WEEKLY
  13. CELEBREX [Concomitant]
     Route: 048
  14. REMICADE [Suspect]
     Indication: RHEUMATOID ARTHRITIS
     Route: 042
  15. OXYCODONE [Concomitant]
     Indication: PAIN
     Route: 048
  16. PLAQUENIL [Concomitant]
     Indication: RHEUMATOID ARTHRITIS
     Dosage: 2 TABLETS ONCE DAILY
     Route: 048

REACTIONS (3)
  - RHEUMATOID ARTHRITIS [None]
  - DIZZINESS [None]
  - MIGRAINE [None]
